FAERS Safety Report 19593647 (Version 2)
Quarter: 2021Q3

REPORT INFORMATION
  Report Type: Spontaneous
  Country: US (occurrence: US)
  Receive Date: 20210722
  Receipt Date: 20210728
  Transmission Date: 20211014
  Serious: No
  Sender: FDA-Public Use
  Company Number: US-AIMMUNE THERAPEUTICS, INC.-2021AIMT00439

PATIENT

DRUGS (3)
  1. PALFORZIA [Suspect]
     Active Substance: PEANUT
     Indication: FOOD ALLERGY
     Dosage: 40 MG, 1X/DAY
     Route: 048
     Dates: start: 20210709
  2. PEPCID [ALUMINIUM HYDROXIDE GEL, DRIED;MAGNESIUM CARBONATE] [Concomitant]
     Active Substance: ALUMINUM HYDROXIDE\MAGNESIUM CARBONATE
     Indication: PROPHYLAXIS
     Dosage: 20 MG, 2X/DAY
     Route: 048
  3. PALFORZIA [Suspect]
     Active Substance: PEANUT
     Dosage: 40 MG, ONCE,LAST DOSEOF PALFORZIA  PRIOR TO EVENT ONSET
     Route: 048
     Dates: start: 20210709, end: 20210709

REACTIONS (3)
  - Sensation of foreign body [Recovered/Resolved]
  - Nausea [Unknown]
  - Abdominal discomfort [Recovering/Resolving]

NARRATIVE: CASE EVENT DATE: 20210709
